FAERS Safety Report 20626906 (Version 1)
Quarter: 2022Q1

REPORT INFORMATION
  Report Type: Spontaneous
  Country: AT (occurrence: AT)
  Receive Date: 20220323
  Receipt Date: 20220323
  Transmission Date: 20220423
  Serious: Yes (Other)
  Sender: FDA-Public Use
  Company Number: AT-ELI_LILLY_AND_COMPANY-AT202203005166

PATIENT
  Sex: Female

DRUGS (2)
  1. RAMUCIRUMAB [Suspect]
     Active Substance: RAMUCIRUMAB
     Indication: Product used for unknown indication
     Dosage: 10 MG/KG, CYCLICAL
     Route: 065
     Dates: start: 202003, end: 202011
  2. ERLOTINIB [Concomitant]
     Active Substance: ERLOTINIB
     Indication: Product used for unknown indication
     Dosage: 150 MG, DAILY
     Route: 065
     Dates: start: 202003, end: 202011

REACTIONS (2)
  - Pulmonary embolism [Unknown]
  - Malignant neoplasm progression [Unknown]

NARRATIVE: CASE EVENT DATE: 20201001
